FAERS Safety Report 14702072 (Version 2)
Quarter: 2018Q2

REPORT INFORMATION
  Report Type: Spontaneous
  Country: US (occurrence: US)
  Receive Date: 20180331
  Receipt Date: 20180403
  Transmission Date: 20180711
  Serious: Yes (Hospitalization)
  Sender: FDA-Public Use
  Company Number: US-JNJFOC-20180324022

PATIENT
  Age: 61 Year
  Sex: Male
  Weight: 104.33 kg

DRUGS (26)
  1. MIDODRINE [Concomitant]
     Active Substance: MIDODRINE
     Route: 065
  2. STELARA [Suspect]
     Active Substance: USTEKINUMAB
     Indication: PSORIATIC ARTHROPATHY
     Route: 058
  3. IRON [Concomitant]
     Active Substance: IRON
     Route: 065
  4. PROVENTIL [Concomitant]
     Active Substance: ALBUTEROL
     Route: 065
  5. TUMS [Concomitant]
     Active Substance: CALCIUM CARBONATE
     Route: 065
  6. VITAMIN B12 [Concomitant]
     Active Substance: CYANOCOBALAMIN
     Route: 065
  7. LITHIUM. [Concomitant]
     Active Substance: LITHIUM
     Route: 065
  8. ZYRTEC [Concomitant]
     Active Substance: CETIRIZINE HYDROCHLORIDE
     Route: 065
  9. FLUNISOLIDE. [Concomitant]
     Active Substance: FLUNISOLIDE
     Route: 065
  10. BENAZEPRIL [Concomitant]
     Active Substance: BENAZEPRIL HYDROCHLORIDE
     Route: 065
  11. METFORMIN [Concomitant]
     Active Substance: METFORMIN HYDROCHLORIDE
     Route: 065
  12. METOPROLOL. [Concomitant]
     Active Substance: METOPROLOL
     Route: 065
  13. BENTYL [Concomitant]
     Active Substance: DICYCLOMINE HYDROCHLORIDE
     Route: 065
  14. ALPRAZOLAM. [Concomitant]
     Active Substance: ALPRAZOLAM
     Route: 065
  15. COLACE [Concomitant]
     Active Substance: DOCUSATE SODIUM
     Route: 065
  16. PERCOCET [Concomitant]
     Active Substance: ACETAMINOPHEN\OXYCODONE HYDROCHLORIDE
     Route: 065
  17. SIMVASTATIN. [Concomitant]
     Active Substance: SIMVASTATIN
     Route: 065
  18. STELARA [Suspect]
     Active Substance: USTEKINUMAB
     Indication: PSORIATIC ARTHROPATHY
     Dosage: ON WEEK 4
     Route: 058
  19. NEURONTIN [Concomitant]
     Active Substance: GABAPENTIN
     Route: 065
  20. NITROSTAT [Concomitant]
     Active Substance: NITROGLYCERIN
     Route: 065
  21. AMBIEN [Concomitant]
     Active Substance: ZOLPIDEM TARTRATE
     Route: 065
  22. ASMANEX [Concomitant]
     Active Substance: MOMETASONE FUROATE
     Route: 065
  23. CYMBALTA [Concomitant]
     Active Substance: DULOXETINE HYDROCHLORIDE
     Route: 065
  24. MUCINEX [Concomitant]
     Active Substance: GUAIFENESIN
     Route: 065
  25. TRAMADOL. [Concomitant]
     Active Substance: TRAMADOL
     Route: 065
  26. FLEXERIL [Concomitant]
     Active Substance: CYCLOBENZAPRINE HYDROCHLORIDE
     Route: 065

REACTIONS (3)
  - Chest pain [Unknown]
  - Haemoglobin decreased [Recovered/Resolved]
  - Diarrhoea [Recovered/Resolved]

NARRATIVE: CASE EVENT DATE: 2018
